FAERS Safety Report 25364414 (Version 1)
Quarter: 2025Q2

REPORT INFORMATION
  Report Type: Spontaneous
  Country: IN (occurrence: IN)
  Receive Date: 20250527
  Receipt Date: 20250527
  Transmission Date: 20250716
  Serious: Yes (Death, Other)
  Sender: PFIZER
  Company Number: IN-PFIZER INC-PV202200073126

PATIENT
  Age: 58 Year
  Sex: Male

DRUGS (4)
  1. DACOMITINIB [Suspect]
     Active Substance: DACOMITINIB
     Indication: Lung adenocarcinoma
     Route: 048
     Dates: start: 20220715
  2. DACOMITINIB [Suspect]
     Active Substance: DACOMITINIB
     Dosage: 45 MG, 1X/DAY
     Route: 048
  3. DACOMITINIB [Suspect]
     Active Substance: DACOMITINIB
     Dosage: 45MG AND 30 MG, ALTERNATE DAY/45MG ALTERNATING WITH 30 MG
     Route: 048
  4. DENOSUMAB [Concomitant]
     Active Substance: DENOSUMAB
     Indication: Bone disorder

REACTIONS (6)
  - Death [Fatal]
  - Diarrhoea [Unknown]
  - Rash [Unknown]
  - Alopecia [Unknown]
  - Off label use [Unknown]
  - Product use issue [Unknown]
